FAERS Safety Report 12824772 (Version 4)
Quarter: 2016Q4

REPORT INFORMATION
  Report Type: Report from Study
  Country: IL (occurrence: IL)
  Receive Date: 20161007
  Receipt Date: 20161115
  Transmission Date: 20170207
  Serious: Yes (Hospitalization, Other)
  Sender: FDA-Public Use
  Company Number: IL-ROCHE-1788461

PATIENT
  Age: 17 Year
  Sex: Male

DRUGS (1)
  1. COBIMETINIB [Suspect]
     Active Substance: COBIMETINIB
     Indication: GLIONEURONAL TUMOUR
     Route: 065
     Dates: start: 20160518

REACTIONS (11)
  - Cerebrovascular accident [Unknown]
  - Disease progression [Not Recovered/Not Resolved]
  - Rash [Unknown]
  - Asthenia [Unknown]
  - Pyrexia [Recovered/Resolved]
  - Neurological decompensation [Not Recovered/Not Resolved]
  - Abdominal pain [Unknown]
  - Uveitis [Recovering/Resolving]
  - Diarrhoea [Unknown]
  - Skin infection [Recovered/Resolved]
  - Amnesia [Not Recovered/Not Resolved]

NARRATIVE: CASE EVENT DATE: 201607
